FAERS Safety Report 22153997 (Version 2)
Quarter: 2023Q2

REPORT INFORMATION
  Report Type: Spontaneous
  Country: US (occurrence: US)
  Receive Date: 20230330
  Receipt Date: 20230425
  Transmission Date: 20230722
  Serious: No
  Sender: FDA-Public Use
  Company Number: US-JNJFOC-20230366291

PATIENT
  Age: 24 Year
  Sex: Male
  Weight: 74.910 kg

DRUGS (6)
  1. STELARA [Suspect]
     Active Substance: USTEKINUMAB
     Indication: Colitis ulcerative
     Route: 058
  2. STELARA [Suspect]
     Active Substance: USTEKINUMAB
  3. HYDROCHLOROTHIAZIDE [Concomitant]
     Active Substance: HYDROCHLOROTHIAZIDE
  4. ALPRAZOLAM [Concomitant]
     Active Substance: ALPRAZOLAM
  5. METOPROLOL [Concomitant]
     Active Substance: METOPROLOL
  6. MESALAMINE [Concomitant]
     Active Substance: MESALAMINE

REACTIONS (4)
  - Syringe issue [Unknown]
  - Product leakage [Unknown]
  - Product dose omission issue [Unknown]
  - Nasopharyngitis [Unknown]

NARRATIVE: CASE EVENT DATE: 20230317
